FAERS Safety Report 24803442 (Version 2)
Quarter: 2025Q2

REPORT INFORMATION
  Report Type: Spontaneous
  Country: CN (occurrence: CN)
  Receive Date: 20250103
  Receipt Date: 20250404
  Transmission Date: 20250717
  Serious: Yes (Other)
  Sender: ASTELLAS
  Company Number: CN-ASTELLAS-2025-AER-000010

PATIENT
  Age: 70 Year
  Sex: Female
  Weight: 45.0 kg

DRUGS (2)
  1. ISAVUCONAZONIUM SULFATE [Suspect]
     Active Substance: ISAVUCONAZONIUM SULFATE
     Indication: Infection
     Dosage: 3X/DAY; IV DRIP; IV DRIP, INJECTION 200 MG + NORMAL SALINE 100ML
     Route: 042
     Dates: start: 20241215, end: 20241215
  2. ISAVUCONAZONIUM SULFATE [Suspect]
     Active Substance: ISAVUCONAZONIUM SULFATE
     Indication: Antifungal treatment

REACTIONS (4)
  - Blood pressure increased [Recovering/Resolving]
  - Head discomfort [Recovering/Resolving]
  - Chest discomfort [Recovering/Resolving]
  - Off label use [Unknown]

NARRATIVE: CASE EVENT DATE: 20241215
